FAERS Safety Report 6794009-0 (Version None)
Quarter: 2010Q2

REPORT INFORMATION
  Report Type: 
  Country: None (occurrence: None)
  Receive Date: 20100624
  Receipt Date: 20061017
  Transmission Date: 20101027
  Serious: Yes (Death)
  Sender: FDA-Public Use
  Company Number: US-PFIZER INC-23100349

PATIENT
  Age: 70 Year
  Sex: Female

DRUGS (1)
  1. ARGATROBAN [Suspect]

REACTIONS (1)
  - HAEMORRHAGE INTRACRANIAL [None]
